FAERS Safety Report 9471063 (Version 2)
Quarter: 2013Q3

REPORT INFORMATION
  Report Type: Spontaneous
  Country: FR (occurrence: FR)
  Receive Date: 20130822
  Receipt Date: 20130912
  Transmission Date: 20140515
  Serious: Yes (Life-Threatening, Hospitalization)
  Sender: FDA-Public Use
  Company Number: FR-PFIZER INC-2013239594

PATIENT
  Age: 73 Year
  Sex: Male

DRUGS (7)
  1. INLYTA [Suspect]
     Dosage: 2 MG, 1X/DAY
     Route: 048
     Dates: start: 20130705, end: 20130719
  2. INLYTA [Suspect]
     Dosage: 7 MG, 1X/DAY
     Route: 048
     Dates: start: 20130719, end: 20130802
  3. INLYTA [Suspect]
     Dosage: 20 MG, 1X/DAY
     Route: 048
     Dates: start: 201308, end: 20130810
  4. ALLOPURINOL [Concomitant]
  5. SIMVASTATIN [Concomitant]
  6. LERCAN [Concomitant]
  7. LEVOTHYROX [Concomitant]

REACTIONS (1)
  - Posterior reversible encephalopathy syndrome [Recovered/Resolved]
